FAERS Safety Report 4315264-2 (Version None)
Quarter: 2004Q1

REPORT INFORMATION
  Report Type: 
  Country: None (occurrence: None)
  Receive Date: 20040309
  Receipt Date: 20040220
  Transmission Date: 20041129
  Serious: Yes (Other)
  Sender: FDA-Public Use
  Company Number: JP_040202680

PATIENT
  Age: 84 Year
  Sex: Female
  Weight: 29 kg

DRUGS (3)
  1. ONCOVIN [Suspect]
     Indication: LYMPHOMA
     Dosage: 1 MG OTHER
     Route: 050
     Dates: end: 20031218
  2. DOXORUBICIN HCL [Concomitant]
  3. CYCLOPHOSPHAMIDE [Concomitant]

REACTIONS (2)
  - ILEAL PERFORATION [None]
  - MALAISE [None]
